FAERS Safety Report 9777990 (Version 1)
Quarter: 2013Q4

REPORT INFORMATION
  Report Type: Spontaneous
  Country: GB (occurrence: GB)
  Receive Date: 20131223
  Receipt Date: 20131223
  Transmission Date: 20140711
  Serious: Yes (Other)
  Sender: FDA-Public Use
  Company Number: GB-009507513-1312GBR009229

PATIENT
  Age: 33 Year
  Sex: Male

DRUGS (1)
  1. PROPECIA 1MG FILM-COATED TABLET [Suspect]
     Indication: ANDROGENETIC ALOPECIA
     Dosage: 1 MG, QD
     Route: 048
     Dates: start: 20130531

REACTIONS (2)
  - Acne [Not Recovered/Not Resolved]
  - Discomfort [Not Recovered/Not Resolved]
